FAERS Safety Report 23198402 (Version 5)
Quarter: 2024Q1

REPORT INFORMATION
  Report Type: Other
  Country: US (occurrence: US)
  Receive Date: 20231117
  Receipt Date: 20240226
  Transmission Date: 20240409
  Serious: Yes (Hospitalization, Other)
  Sender: FDA-Public Use
  Company Number: US-TRAVERE-2023TVT00468

PATIENT
  Age: 42 Year
  Sex: Male

DRUGS (7)
  1. FILSPARI [Suspect]
     Active Substance: SPARSENTAN
     Indication: IgA nephropathy
     Dosage: 200MG ONCE A DAY FOR 14 DAYS, THEN TAKE 2 TABLETS.
     Route: 048
     Dates: start: 20230811
  2. FILSPARI [Suspect]
     Active Substance: SPARSENTAN
     Route: 048
  3. FILSPARI [Suspect]
     Active Substance: SPARSENTAN
     Route: 048
  4. ALLOPURINOL [Concomitant]
     Active Substance: ALLOPURINOL
  5. ERGOCALCIFEROL [Concomitant]
     Active Substance: ERGOCALCIFEROL
  6. LOKELMA [Concomitant]
     Active Substance: SODIUM ZIRCONIUM CYCLOSILICATE
  7. socium bicardonate [Concomitant]

REACTIONS (7)
  - Abdominal pain upper [Recovered/Resolved]
  - Renal impairment [Unknown]
  - Insomnia [Recovering/Resolving]
  - Renal pain [Recovering/Resolving]
  - Blood creatinine increased [Unknown]
  - Blood potassium increased [Unknown]
  - Glomerular filtration rate decreased [Unknown]

NARRATIVE: CASE EVENT DATE: 20230828
